FAERS Safety Report 5957340-4 (Version None)
Quarter: 2008Q4

REPORT INFORMATION
  Report Type: 
  Country: None (occurrence: None)
  Receive Date: 20081114
  Receipt Date: 20081110
  Transmission Date: 20090506
  Serious: Yes (Hospitalization)
  Sender: FDA-Public Use
  Company Number: 036553

PATIENT
  Sex: Female

DRUGS (8)
  1. IRINOTECAN [Suspect]
     Indication: GASTRIC CANCER
     Dosage: 180 MG/M*2, QD, EVERY 2 WEEKS, INTRAVENOUS
     Route: 042
     Dates: start: 20050921
  2. IRINOTECAN [Suspect]
     Indication: OESOPHAGEAL ADENOCARCINOMA
     Dosage: 180 MG/M*2, QD, EVERY 2 WEEKS, INTRAVENOUS
     Route: 042
     Dates: start: 20050921
  3. FLUOROURACIL [Suspect]
     Indication: GASTRIC CANCER
     Dosage: 600 MG/M2 INFUSION ON DAY1+2 Q2WK, INTRAVENOUS; 400MG/M2, BOLUS ON DAY 1+2, Q2WK, INTRAVENOUS
     Route: 042
     Dates: start: 20050921
  4. FLUOROURACIL [Suspect]
     Indication: OESOPHAGEAL ADENOCARCINOMA
     Dosage: 600 MG/M2 INFUSION ON DAY1+2 Q2WK, INTRAVENOUS; 400MG/M2, BOLUS ON DAY 1+2, Q2WK, INTRAVENOUS
     Route: 042
     Dates: start: 20050921
  5. FLUOROURACIL [Suspect]
     Indication: GASTRIC CANCER
     Dosage: 600 MG/M2 INFUSION ON DAY1+2 Q2WK, INTRAVENOUS; 400MG/M2, BOLUS ON DAY 1+2, Q2WK, INTRAVENOUS
     Route: 042
     Dates: start: 20050921
  6. FLUOROURACIL [Suspect]
     Indication: OESOPHAGEAL ADENOCARCINOMA
     Dosage: 600 MG/M2 INFUSION ON DAY1+2 Q2WK, INTRAVENOUS; 400MG/M2, BOLUS ON DAY 1+2, Q2WK, INTRAVENOUS
     Route: 042
     Dates: start: 20050921
  7. LEUCOVORIN CALCIUM [Suspect]
     Indication: GASTRIC CANCER
     Dosage: 100 MG/M*2 ON DAY 1+2 Q2WK, INTRAVENOUS
     Route: 042
     Dates: start: 20050921
  8. LEUCOVORIN CALCIUM [Suspect]
     Indication: OESOPHAGEAL ADENOCARCINOMA
     Dosage: 100 MG/M*2 ON DAY 1+2 Q2WK, INTRAVENOUS
     Route: 042
     Dates: start: 20050921

REACTIONS (3)
  - INCORRECT DOSE ADMINISTERED [None]
  - INTERNATIONAL NORMALISED RATIO INCREASED [None]
  - PROTHROMBIN TIME PROLONGED [None]
